FAERS Safety Report 7801327-3 (Version None)
Quarter: 2011Q4

REPORT INFORMATION
  Report Type: 
  Country: None (occurrence: None)
  Receive Date: 20111006
  Receipt Date: 20111006
  Transmission Date: 20120403
  Serious: Yes (Hospitalization)
  Sender: FDA-Public Use
  Company Number: None

PATIENT
  Age: 74 Year
  Sex: Male
  Weight: 93.9 kg

DRUGS (6)
  1. ASPIRIN [Suspect]
     Indication: PROPHYLAXIS
     Dosage: 81MG DAILY PO CHRONIC
     Route: 048
  2. BUSPAR [Concomitant]
  3. PRAVACHOL [Concomitant]
  4. NAPROXEN (ALEVE) [Suspect]
     Indication: PAIN
     Dosage: 4-6 TIMES/DAY PO RECENT
     Route: 048
  5. COMBIVENT [Concomitant]
  6. PEPCID [Concomitant]

REACTIONS (1)
  - IRON DEFICIENCY ANAEMIA [None]
